FAERS Safety Report 12631521 (Version 2)
Quarter: 2016Q3

REPORT INFORMATION
  Report Type: Spontaneous
  Country: US (occurrence: US)
  Receive Date: 20160808
  Receipt Date: 20160808
  Transmission Date: 20161109
  Serious: No
  Sender: FDA-Public Use
  Company Number: US-BEH-2015054437

PATIENT
  Sex: Female
  Weight: 87 kg

DRUGS (11)
  1. EPIPEN [Concomitant]
     Active Substance: EPINEPHRINE
     Indication: ANAPHYLACTIC REACTION
  2. HIZENTRA [Suspect]
     Active Substance: HUMAN IMMUNOGLOBULIN G
     Route: 058
  3. MUCINEX [Concomitant]
     Active Substance: GUAIFENESIN
  4. TETRACYCLINE [Concomitant]
     Active Substance: TETRACYCLINE
  5. HIZENTRA [Suspect]
     Active Substance: HUMAN IMMUNOGLOBULIN G
     Indication: HYPOGAMMAGLOBULINAEMIA
     Route: 058
  6. LIDOCAINE. [Concomitant]
     Active Substance: LIDOCAINE
  7. LAMICTAL [Concomitant]
     Active Substance: LAMOTRIGINE
  8. PREDNISONE. [Concomitant]
     Active Substance: PREDNISONE
  9. LEXAPRO [Concomitant]
     Active Substance: ESCITALOPRAM OXALATE
  10. COUMADIN [Concomitant]
     Active Substance: WARFARIN SODIUM
  11. INSULIN [Concomitant]
     Active Substance: INSULIN NOS

REACTIONS (2)
  - Infusion site nodule [Unknown]
  - Infusion site scar [Unknown]
